FAERS Safety Report 4865776-8 (Version None)
Quarter: 2005Q4

REPORT INFORMATION
  Report Type: 
  Country: None (occurrence: None)
  Receive Date: 20051223
  Receipt Date: 20051215
  Transmission Date: 20060501
  Serious: Yes (Disabling)
  Sender: FDA-Public Use
  Company Number: PHBS2005NZ18528

PATIENT
  Age: 50 Year
  Sex: Male

DRUGS (5)
  1. ZOMETA [Suspect]
     Dosage: 4 MG, UNK
     Route: 042
     Dates: start: 20050426
  2. COLCHICINE [Concomitant]
     Route: 048
  3. OMEPRAZOLE [Concomitant]
     Dosage: 20 MG/D
     Route: 048
     Dates: start: 20040101
  4. PREDNISONE 50MG TAB [Concomitant]
     Dosage: 50 MG/D
     Route: 048
     Dates: start: 20040101
  5. THALIDOMIDE [Concomitant]
     Dosage: 100 MG/D
     Route: 048
     Dates: start: 20040101

REACTIONS (2)
  - IMPAIRED HEALING [None]
  - OSTEONECROSIS [None]
